FAERS Safety Report 16255808 (Version 1)
Quarter: 2019Q2

REPORT INFORMATION
  Report Type: Spontaneous
  Country: US (occurrence: US)
  Receive Date: 20190429
  Receipt Date: 20190429
  Transmission Date: 20190711
  Serious: Yes (Hospitalization, Other)
  Sender: FDA-Public Use
  Company Number: None

PATIENT
  Age: 59 Year
  Sex: Male
  Weight: 162 kg

DRUGS (3)
  1. ALPRAZOLAM 0.5MG [Concomitant]
     Active Substance: ALPRAZOLAM
  2. LOSARTAN/HCTZ 100/12.5 [Concomitant]
  3. XARELTO [Suspect]
     Active Substance: RIVAROXABAN
     Indication: PULMONARY EMBOLISM
     Route: 048
     Dates: start: 20190317, end: 20190403

REACTIONS (7)
  - Blood alkaline phosphatase increased [None]
  - Vomiting [None]
  - Aspartate aminotransferase increased [None]
  - Blood bilirubin increased [None]
  - Nausea [None]
  - Abdominal pain [None]
  - Alanine aminotransferase increased [None]

NARRATIVE: CASE EVENT DATE: 20190403
